FAERS Safety Report 6722777-2 (Version None)
Quarter: 2010Q2

REPORT INFORMATION
  Report Type: 
  Country: None (occurrence: None)
  Receive Date: 20100511
  Receipt Date: 20100506
  Transmission Date: 20101027
  Serious: Yes (Death)
  Sender: FDA-Public Use
  Company Number: 2010SP004339

PATIENT
  Age: 77 Year
  Sex: Male

DRUGS (6)
  1. CLARITIN [Suspect]
     Indication: RHINITIS ALLERGIC
     Dosage: 10 MG;QD;PO
     Route: 048
     Dates: start: 20070111, end: 20090615
  2. PIRFENIDONE [Suspect]
     Indication: IDIOPATHIC PULMONARY FIBROSIS
     Dosage: 200 MG;TID;PO ; 400 MG;TID;PO ; 600 MG;TID;PO
     Route: 048
     Dates: start: 20090330, end: 20090615
  3. PIRFENIDONE [Suspect]
     Indication: IDIOPATHIC PULMONARY FIBROSIS
     Dosage: 200 MG;TID;PO ; 400 MG;TID;PO ; 600 MG;TID;PO
     Route: 048
     Dates: start: 20090302
  4. PIRFENIDONE [Suspect]
     Indication: IDIOPATHIC PULMONARY FIBROSIS
     Dosage: 200 MG;TID;PO ; 400 MG;TID;PO ; 600 MG;TID;PO
     Route: 048
     Dates: start: 20090316
  5. BASEN [Concomitant]
  6. EUGLOCON [Concomitant]

REACTIONS (1)
  - DEATH [None]
